FAERS Safety Report 8438931-8 (Version None)
Quarter: 2012Q2

REPORT INFORMATION
  Report Type: 
  Country: None (occurrence: None)
  Receive Date: 20120608
  Receipt Date: 20120523
  Transmission Date: 20120825
  Serious: Yes (Other)
  Sender: FDA-Public Use
  Company Number: 20120234

PATIENT
  Age: 48 Year
  Sex: Female

DRUGS (3)
  1. IRON PILL [Concomitant]
  2. CYANOCOBALAMIN [Suspect]
     Indication: PRODUCT USED FOR UNKNOWN INDICATION
     Dosage: 1 ML EVERY 2 WEEKS, INTRAMUSCULAR
     Route: 030
     Dates: start: 20120306, end: 20120403
  3. MULTI-VITAMINS [Concomitant]

REACTIONS (16)
  - PRODUCT QUALITY ISSUE [None]
  - MYALGIA [None]
  - FATIGUE [None]
  - PRESYNCOPE [None]
  - DIZZINESS [None]
  - PALPITATIONS [None]
  - DISTURBANCE IN ATTENTION [None]
  - MENORRHAGIA [None]
  - EPISTAXIS [None]
  - DIARRHOEA [None]
  - PRODUCT TAMPERING [None]
  - DISORIENTATION [None]
  - LETHARGY [None]
  - POOR QUALITY DRUG ADMINISTERED [None]
  - PRODUCT CONTAMINATION [None]
  - ASTHENIA [None]
